FAERS Safety Report 7477874-3 (Version None)
Quarter: 2011Q2

REPORT INFORMATION
  Report Type: 
  Country: None (occurrence: None)
  Receive Date: 20110513
  Receipt Date: 20110503
  Transmission Date: 20111010
  Serious: Yes (Death, Disabling, Other)
  Sender: FDA-Public Use
  Company Number: DK-BAYER-SAG-2002-004974

PATIENT
  Age: 17 Year
  Sex: Female
  Weight: 52 kg

DRUGS (1)
  1. YASMIN [Suspect]
     Indication: CONTRACEPTION
     Dosage: UNK, 21D/28D
     Route: 048
     Dates: start: 20020301, end: 20020605

REACTIONS (10)
  - PULMONARY HYPERTENSION [None]
  - DILATATION VENTRICULAR [None]
  - ANAEMIA [None]
  - CHEST PAIN [None]
  - CARDIAC ARREST [None]
  - CIRCULATORY COLLAPSE [None]
  - PULMONARY EMBOLISM [None]
  - PELVIC VENOUS THROMBOSIS [None]
  - INFECTION [None]
  - DYSPNOEA EXERTIONAL [None]
